FAERS Safety Report 7917879-9 (Version None)
Quarter: 2011Q4

REPORT INFORMATION
  Report Type: 
  Country: None (occurrence: None)
  Receive Date: 20111116
  Receipt Date: 20111108
  Transmission Date: 20120403
  Serious: Yes (Other)
  Sender: FDA-Public Use
  Company Number: PHHY2011BR098918

PATIENT
  Sex: Female

DRUGS (1)
  1. ESTRADERM [Suspect]
     Dosage: 100 UG, UNK
     Route: 062
     Dates: start: 20111104

REACTIONS (8)
  - DYSPNOEA [None]
  - PAIN IN EXTREMITY [None]
  - GAIT DISTURBANCE [None]
  - FATIGUE [None]
  - ABDOMINAL PAIN UPPER [None]
  - NAUSEA [None]
  - DIZZINESS [None]
  - PRESYNCOPE [None]
